FAERS Safety Report 7209019-9 (Version None)
Quarter: 2011Q1

REPORT INFORMATION
  Report Type: 
  Country: None (occurrence: None)
  Receive Date: 20110104
  Receipt Date: 20110103
  Transmission Date: 20110831
  Serious: Yes (Other)
  Sender: FDA-Public Use
  Company Number: US-PFIZER INC-US-WYE-H16789210

PATIENT
  Sex: Female
  Weight: 72.6 kg

DRUGS (9)
  1. NORTRIPTYLINE [Concomitant]
  2. BOTOX [Suspect]
     Indication: HEADACHE
     Dosage: UNK
     Route: 065
     Dates: start: 20100401
  3. FIORICET [Suspect]
     Indication: HEADACHE
     Route: 048
  4. RELPAX [Suspect]
     Indication: MIGRAINE
     Dosage: 40 MG, AS NEEDED
     Route: 048
  5. ADVIL [Suspect]
     Indication: HEADACHE
     Route: 048
  6. ATENOLOL [Concomitant]
  7. TOPAMAX [Suspect]
     Indication: HEADACHE
     Route: 048
  8. PAXIL [Suspect]
     Indication: HEADACHE
     Route: 048
  9. CYMBALTA [Suspect]
     Indication: HEADACHE
     Route: 048

REACTIONS (2)
  - DRUG INEFFECTIVE [None]
  - OSTEOPOROSIS [None]
